FAERS Safety Report 17799768 (Version 3)
Quarter: 2020Q3

REPORT INFORMATION
  Report Type: Spontaneous
  Country: US (occurrence: US)
  Receive Date: 20200518
  Receipt Date: 20200710
  Transmission Date: 20201102
  Serious: Yes (Hospitalization, Other)
  Sender: FDA-Public Use
  Company Number: US-MEDEXUS PHARMA, INC.-2020MED00130

PATIENT
  Age: 92 Year
  Sex: Female
  Weight: 77.11 kg

DRUGS (9)
  1. RASUVO [Suspect]
     Active Substance: METHOTREXATE SODIUM
     Indication: RHEUMATOID ARTHRITIS
     Dosage: 15 MG, 1X/WEEK ON WEDNESDAYS, INJECTED INTO ALTERATING THIGHS
     Dates: end: 2020
  2. RASUVO [Suspect]
     Active Substance: METHOTREXATE SODIUM
     Dosage: 15 MG, 1X/WEEK ON WEDNESDAYS INJECTED INTO ALTERATING THIGHS
     Dates: start: 2020, end: 202004
  3. LOSARTAN. [Concomitant]
     Active Substance: LOSARTAN
     Dosage: 50 MG, 1X/DAY
  4. FOLIC ACID. [Concomitant]
     Active Substance: FOLIC ACID
     Dosage: 1 MG, 1X/DAY
     Route: 048
  5. RASUVO [Suspect]
     Active Substance: METHOTREXATE SODIUM
     Dosage: 15 MG, 1X/WEEK ON WEDNESDAYS INJECTED INTO ALTERATING THIGHS
     Dates: start: 2020, end: 2020
  6. POTASSIUM CHLORIDE. [Concomitant]
     Active Substance: POTASSIUM CHLORIDE
     Dosage: 10 MEQ, 1X/DAY
     Route: 048
  7. CRESTOR [Concomitant]
     Active Substance: ROSUVASTATIN CALCIUM
     Dosage: 10 MG, 1X/DAY
     Route: 048
  8. PREDNISONE. [Concomitant]
     Active Substance: PREDNISONE
     Dosage: 2.5 MG, 1X/DAY
     Route: 048
  9. FUROSEMIDE. [Concomitant]
     Active Substance: FUROSEMIDE
     Dosage: 20 MG, 1X/DAY AS NEEDED
     Route: 048

REACTIONS (16)
  - Computerised tomogram abnormal [Unknown]
  - Product dose omission issue [Recovered/Resolved]
  - Confusional state [Recovering/Resolving]
  - Device delivery system issue [Unknown]
  - Anion gap abnormal [Unknown]
  - Fall [Recovered/Resolved]
  - Blood glucose abnormal [Unknown]
  - Malaise [Recovering/Resolving]
  - Memory impairment [Recovering/Resolving]
  - Moaning [Recovering/Resolving]
  - Device failure [Not Recovered/Not Resolved]
  - Cervical vertebral fracture [Recovering/Resolving]
  - Blood sodium abnormal [Unknown]
  - Blood chloride abnormal [Unknown]
  - Syncope [Recovered/Resolved]
  - Contusion [Recovering/Resolving]

NARRATIVE: CASE EVENT DATE: 202004
